FAERS Safety Report 4950043-4 (Version None)
Quarter: 2006Q1

REPORT INFORMATION
  Report Type: 
  Country: None (occurrence: None)
  Receive Date: 20060320
  Receipt Date: 20060320
  Transmission Date: 20060701
  Serious: No
  Sender: FDA-Public Use
  Company Number: None

PATIENT
  Age: 44 Year
  Sex: Male
  Weight: 83.9154 kg

DRUGS (1)
  1. GENTAMICIN [Suspect]

REACTIONS (5)
  - DIFFICULTY IN WALKING [None]
  - OVERDOSE [None]
  - TINNITUS [None]
  - VESTIBULAR NEURONITIS [None]
  - VISUAL DISTURBANCE [None]
